FAERS Safety Report 16980904 (Version 1)
Quarter: 2019Q4

REPORT INFORMATION
  Report Type: Spontaneous
  Country: US (occurrence: US)
  Receive Date: 20191031
  Receipt Date: 20191031
  Transmission Date: 20200122
  Serious: No
  Sender: FDA-Public Use
  Company Number: US-FARMAPROD-201909-1459

PATIENT
  Age: 70 Year
  Sex: Female

DRUGS (5)
  1. AZASITE [Concomitant]
     Active Substance: AZITHROMYCIN MONOHYDRATE
  2. THERATEARS [Concomitant]
     Active Substance: CARBOXYMETHYLCELLULOSE SODIUM
     Dosage: 0.25% DROPERETTE
  3. OXERVATE [Suspect]
     Active Substance: CENEGERMIN-BKBJ
     Indication: NEUROTROPHIC KERATOPATHY
     Route: 047
  4. RESTASIS [Concomitant]
     Active Substance: CYCLOSPORINE
     Dosage: 0.05% DROPERETTE
  5. XIIDRA [Concomitant]
     Active Substance: LIFITEGRAST
     Dosage: 5% DROPERETTE

REACTIONS (2)
  - Fall [Unknown]
  - Malaise [Unknown]

NARRATIVE: CASE EVENT DATE: 20190915
